FAERS Safety Report 9471336 (Version 1)
Quarter: 2013Q3

REPORT INFORMATION
  Report Type: Spontaneous
  Country: US (occurrence: US)
  Receive Date: 20130822
  Receipt Date: 20130822
  Transmission Date: 20140515
  Serious: Yes (Other)
  Sender: FDA-Public Use
  Company Number: US-PFIZER INC-2012241614

PATIENT
  Sex: 0

DRUGS (1)
  1. LYRICA [Suspect]
     Indication: CONVULSION
     Dosage: 600 MG, UNK

REACTIONS (2)
  - Drug ineffective [Unknown]
  - Off label use [Unknown]
